FAERS Safety Report 18795581 (Version 1)
Quarter: 2021Q1

REPORT INFORMATION
  Report Type: Report from Study
  Country: FR (occurrence: FR)
  Receive Date: 20210127
  Receipt Date: 20210127
  Transmission Date: 20210419
  Serious: Yes (Life-Threatening, Hospitalization)
  Sender: FDA-Public Use
  Company Number: FR-IMMUNOMEDICS, INC.-2020IMMU000027

PATIENT
  Age: 50 Year
  Sex: Female
  Weight: 126.8 kg

DRUGS (14)
  1. SACITUZUMAB GOVITECAN. [Suspect]
     Active Substance: SACITUZUMAB GOVITECAN
     Indication: BREAST CANCER METASTATIC
     Dosage: 10 MG/KG DAYS 1 AND 8 OF 21?DAYS CYCLE.
     Route: 042
     Dates: start: 20200205, end: 20200205
  2. METOCLOPRAMIDE. [Concomitant]
     Active Substance: METOCLOPRAMIDE
     Indication: PROPHYLAXIS OF NAUSEA AND VOMITING
     Dosage: 10 MG, PRN
     Route: 065
     Dates: start: 20200205
  3. PARACETAMOL [Concomitant]
     Active Substance: ACETAMINOPHEN
     Indication: PAIN PROPHYLAXIS
     Dosage: 1 G, PRN
     Route: 065
  4. LOPERAMIDE [Concomitant]
     Active Substance: LOPERAMIDE
     Indication: PROPHYLAXIS AGAINST DIARRHOEA
     Dosage: 2 MG, PRN (1 CAP AFTER EACH LOOSE BOWEL MOVEMENT, DO NOT TAKE MORE THAN 8 CAPSULES IN A DAY)
     Route: 048
     Dates: start: 20200205
  5. EMEND [Concomitant]
     Active Substance: APREPITANT
     Indication: PROPHYLAXIS OF NAUSEA AND VOMITING
     Dosage: 125 MG DAY 1,8 AND 80 MG DAY 2,3,8,9
     Route: 065
     Dates: start: 20200205
  6. CACIT VITAMIN D3 [Concomitant]
     Active Substance: CALCIUM CARBONATE\CHOLECALCIFEROL
     Indication: OSTEOPOROSIS PROPHYLAXIS
     Dosage: 1 DF (SACHET; 500 MG/400 IU), QD
     Route: 065
  7. XGEVA [Concomitant]
     Active Substance: DENOSUMAB
     Indication: OSTEOPOROSIS PROPHYLAXIS
     Dosage: 120 UG/1.7 ML EVERY 28 DAYS (Q4W)
     Route: 058
  8. ONDANSETRON [Concomitant]
     Active Substance: ONDANSETRON
     Indication: PROPHYLAXIS OF NAUSEA AND VOMITING
     Dosage: 8 MG, BID FOR 3 DAYS PAST TREATMENT
     Route: 065
     Dates: start: 20200205
  9. SODIUM BICARBONATE. [Concomitant]
     Active Substance: SODIUM BICARBONATE
     Indication: MUCOSAL INFLAMMATION
  10. GAVISCON [Concomitant]
     Active Substance: ALUMINUM HYDROXIDE\MAGNESIUM CARBONATE
     Indication: GASTROOESOPHAGEAL REFLUX DISEASE
     Dosage: 1 DF (BAG), TID, PRN
     Route: 065
     Dates: start: 20200205
  11. SODIUM BICARBONATE. [Concomitant]
     Active Substance: SODIUM BICARBONATE
     Indication: PROPHYLAXIS
     Dosage: 3?6 MOUTHWASHES, QD
     Route: 048
  12. SACITUZUMAB GOVITECAN. [Suspect]
     Active Substance: SACITUZUMAB GOVITECAN
     Dosage: 10 MG/KG DAYS 1 AND 8 OF 21?DAYS CYCLE.
     Route: 042
     Dates: start: 20200212, end: 20200212
  13. SMECTA [Concomitant]
     Active Substance: MONTMORILLONITE
     Indication: DIARRHOEA
     Dosage: 1 DF (SINGLE?DOSE PACKET), TID (MORNING, NOON, EVENING)
     Route: 048
  14. SPASFON [Concomitant]
     Indication: ABDOMINAL PAIN
     Dosage: 80 MG, 2 TABLETS, MORNING, MIDDAY, AND EVENING, PRN IF ABDOMINAL PAIN
     Route: 065

REACTIONS (2)
  - Neutropenic colitis [Recovered/Resolved]
  - Febrile neutropenia [Recovered/Resolved]

NARRATIVE: CASE EVENT DATE: 20200218
